FAERS Safety Report 9048850 (Version 1)
Quarter: 2013Q1

REPORT INFORMATION
  Report Type: Spontaneous
  Country: US (occurrence: None)
  Receive Date: 20130116
  Receipt Date: 20130116
  Transmission Date: 20140127
  Serious: Yes (Other)
  Sender: FDA-Public Use
  Company Number: 2013P1000300

PATIENT
  Age: 74 Year
  Sex: Female

DRUGS (3)
  1. INFUMORPH [Suspect]
     Indication: POST LAMINECTOMY SYNDROME
  2. INFUMORPH [Suspect]
     Indication: BACK PAIN
  3. INFUMORPH [Suspect]
     Indication: SPINAL PAIN

REACTIONS (2)
  - Drug ineffective [None]
  - Medical device complication [None]
